FAERS Safety Report 20839868 (Version 1)
Quarter: 2022Q2

REPORT INFORMATION
  Report Type: Spontaneous
  Country: US (occurrence: None)
  Receive Date: 20220517
  Receipt Date: 20220517
  Transmission Date: 20220720
  Serious: Yes (Hospitalization)
  Sender: FDA-Public Use
  Company Number: US-Unichem Pharmaceuticals (USA) Inc-UCM202205-000437

PATIENT
  Age: 19 Year
  Sex: Male

DRUGS (22)
  1. BACLOFEN [Suspect]
     Active Substance: BACLOFEN
     Indication: Dystonia
     Dosage: UNKNOWN
     Route: 048
  2. BACLOFEN [Suspect]
     Active Substance: BACLOFEN
     Route: 037
     Dates: start: 201609
  3. BACLOFEN [Suspect]
     Active Substance: BACLOFEN
     Route: 037
  4. BACLOFEN [Suspect]
     Active Substance: BACLOFEN
     Route: 037
     Dates: start: 201812
  5. BACLOFEN [Suspect]
     Active Substance: BACLOFEN
     Route: 037
     Dates: start: 202001
  6. BACLOFEN [Suspect]
     Active Substance: BACLOFEN
     Route: 037
     Dates: start: 202003
  7. BACLOFEN [Suspect]
     Active Substance: BACLOFEN
     Route: 037
     Dates: start: 202003
  8. BACLOFEN [Suspect]
     Active Substance: BACLOFEN
     Route: 037
     Dates: start: 202004
  9. BACLOFEN [Suspect]
     Active Substance: BACLOFEN
     Route: 037
     Dates: start: 202007
  10. BACLOFEN [Suspect]
     Active Substance: BACLOFEN
     Route: 037
     Dates: start: 202007
  11. BACLOFEN [Suspect]
     Active Substance: BACLOFEN
     Route: 037
     Dates: start: 202008
  12. BACLOFEN [Suspect]
     Active Substance: BACLOFEN
     Route: 037
     Dates: start: 202010
  13. CARBIDOPA [Concomitant]
     Active Substance: CARBIDOPA
     Indication: Dystonia
     Dosage: UNKNOWN
     Dates: end: 201812
  14. LEVODOPA [Concomitant]
     Active Substance: LEVODOPA
     Indication: Dystonia
     Dosage: UNKNOWN
     Dates: end: 201812
  15. LAMOTRIGINE [Concomitant]
     Active Substance: LAMOTRIGINE
     Indication: Bipolar disorder
  16. LAMOTRIGINE [Concomitant]
     Active Substance: LAMOTRIGINE
     Dosage: UNKNOWN
  17. LITHIUM [Concomitant]
     Active Substance: LITHIUM
     Indication: Bipolar disorder
     Dosage: UNKNOWN
  18. QUETIAPINE [Concomitant]
     Active Substance: QUETIAPINE
     Indication: Bipolar disorder
     Dosage: UNKNOWN
  19. CARIPRAZINE [Concomitant]
     Active Substance: CARIPRAZINE
     Indication: Bipolar disorder
     Dosage: UNKNOWN
     Dates: start: 202004
  20. PINDOLOL [Concomitant]
     Active Substance: PINDOLOL
     Indication: Agitation
     Dosage: UNKNOWN
  21. Trihexylphenidyl [Concomitant]
     Indication: Dystonia
     Dosage: UNKNOWN
  22. BOTULINUM TOXIN NOS [Concomitant]
     Active Substance: BOTULINUM TOXIN NOS
     Indication: Dystonia
     Dosage: UNKNOWN

REACTIONS (1)
  - Behaviour disorder [Recovering/Resolving]
